FAERS Safety Report 5752311-5 (Version None)
Quarter: 2008Q2

REPORT INFORMATION
  Report Type: 
  Country: None (occurrence: None)
  Receive Date: 20080529
  Receipt Date: 20080528
  Transmission Date: 20081010
  Serious: Yes (Hospitalization)
  Sender: FDA-Public Use
  Company Number: A0729923A

PATIENT
  Age: 75 Year
  Sex: Female
  Weight: 59 kg

DRUGS (3)
  1. ALLI [Suspect]
     Dates: start: 20070701, end: 20071001
  2. DIABETES MEDICATION [Concomitant]
  3. ASTHMA MEDICATION [Concomitant]

REACTIONS (5)
  - ASTHENIA [None]
  - BLOOD TEST ABNORMAL [None]
  - GASTROINTESTINAL HAEMORRHAGE [None]
  - HAEMOGLOBIN DECREASED [None]
  - RECTAL HAEMORRHAGE [None]
